FAERS Safety Report 20923631 (Version 1)
Quarter: 2022Q2

REPORT INFORMATION
  Report Type: Spontaneous
  Country: US (occurrence: US)
  Receive Date: 20220607
  Receipt Date: 20220607
  Transmission Date: 20220721
  Serious: No
  Sender: FDA-Public Use
  Company Number: US-UNITED THERAPEUTICS-UNT-2022-011696

PATIENT
  Age: 57 Year
  Sex: Female

DRUGS (3)
  1. REMODULIN [Suspect]
     Active Substance: TREPROSTINIL
     Indication: Pulmonary arterial hypertension
     Dosage: UNK, CONTINUING
     Route: 058
     Dates: start: 20220414
  2. REMODULIN [Suspect]
     Active Substance: TREPROSTINIL
     Dosage: 0.0187 ?G/KG, CONTINUING
     Route: 058
  3. TRAMADOL [Suspect]
     Active Substance: TRAMADOL
     Indication: Infusion site pain
     Route: 065

REACTIONS (6)
  - Infusion site pain [Recovering/Resolving]
  - Nerve injury [Unknown]
  - Infusion site erythema [Not Recovered/Not Resolved]
  - Malaise [Unknown]
  - Product leakage [Unknown]
  - Device use error [Unknown]

NARRATIVE: CASE EVENT DATE: 20220501
